FAERS Safety Report 19901364 (Version 3)
Quarter: 2021Q4

REPORT INFORMATION
  Report Type: Report from Study
  Country: KR (occurrence: KR)
  Receive Date: 20210930
  Receipt Date: 20211007
  Transmission Date: 20220303
  Serious: Yes (Hospitalization)
  Sender: FDA-Public Use
  Company Number: KR-GLAXOSMITHKLINE-KR2021201475

PATIENT
  Age: 63 Year
  Sex: Male
  Weight: 67 kg

DRUGS (30)
  1. DOSTARLIMAB [Suspect]
     Active Substance: DOSTARLIMAB
     Indication: Non-small cell lung cancer
     Dosage: DOSE AT CYCLE 1 - DAY 1
     Dates: start: 20210527, end: 20210527
  2. DOSTARLIMAB [Suspect]
     Active Substance: DOSTARLIMAB
     Dosage: DOSE AT DAY 1
     Dates: start: 20210615, end: 20210615
  3. DOSTARLIMAB [Suspect]
     Active Substance: DOSTARLIMAB
     Dosage: DOSE AT DAY 1
     Dates: start: 20210706, end: 20210706
  4. DOSTARLIMAB [Suspect]
     Active Substance: DOSTARLIMAB
     Dosage: DOSE AT DAY 1
     Dates: start: 20210728, end: 20210728
  5. DOSTARLIMAB [Suspect]
     Active Substance: DOSTARLIMAB
     Dosage: DOSE AT DAY 1
     Dates: start: 20210817, end: 20210817
  6. DOSTARLIMAB [Suspect]
     Active Substance: DOSTARLIMAB
     Dosage: DOSE AT DAY 1
     Dates: start: 20210907, end: 20210907
  7. PEMETREXED [Suspect]
     Active Substance: PEMETREXED
     Indication: Non-small cell lung cancer
     Dosage: DOSE AT CYCLE 1 - DAY 1
     Route: 042
     Dates: start: 20210527, end: 20210527
  8. PEMETREXED [Suspect]
     Active Substance: PEMETREXED
     Dosage: DOSE AT DAY 1
     Route: 042
     Dates: start: 20210615, end: 20210615
  9. PEMETREXED [Suspect]
     Active Substance: PEMETREXED
     Dosage: DOSE AT DAY 1
     Route: 042
     Dates: start: 20210706, end: 20210706
  10. PEMETREXED [Suspect]
     Active Substance: PEMETREXED
     Dosage: DOSE AT DAY 1
     Route: 042
     Dates: start: 20210728, end: 20210728
  11. PEMETREXED [Suspect]
     Active Substance: PEMETREXED
     Dosage: DOSE AT DAY 1
     Route: 042
     Dates: start: 20210817, end: 20210817
  12. PEMETREXED [Suspect]
     Active Substance: PEMETREXED
     Dosage: DOSE AT DAY 1
     Route: 042
     Dates: start: 20210907, end: 20210907
  13. CARBOPLATIN [Suspect]
     Active Substance: CARBOPLATIN
     Indication: Non-small cell lung cancer
     Dosage: DOSE AT CYCLE 1 - DAY 1
     Route: 042
     Dates: start: 20210527, end: 20210527
  14. CARBOPLATIN [Suspect]
     Active Substance: CARBOPLATIN
     Dosage: DOSE AT DAY 1
     Route: 042
     Dates: start: 20210615, end: 20210615
  15. CARBOPLATIN [Suspect]
     Active Substance: CARBOPLATIN
     Dosage: DOSE AT DAY 1
     Route: 042
     Dates: start: 20210706, end: 20210706
  16. CARBOPLATIN [Suspect]
     Active Substance: CARBOPLATIN
     Dosage: DOSE AT DAY 1
     Route: 042
     Dates: start: 20210728, end: 20210728
  17. LYRICA [Concomitant]
     Active Substance: PREGABALIN
     Indication: Musculoskeletal chest pain
     Dosage: 50 MG, BID
     Route: 048
     Dates: start: 20210514
  18. FENTANYL [Concomitant]
     Active Substance: FENTANYL
     Indication: Musculoskeletal chest pain
     Dosage: 2.1 MG, QD
     Route: 048
     Dates: start: 20210514
  19. MAGNESIUM OXIDE [Concomitant]
     Active Substance: MAGNESIUM OXIDE
     Indication: Constipation
     Dosage: 500 MG, TID
     Route: 048
     Dates: start: 20210514
  20. ALOXI INJECTION [Concomitant]
     Indication: Premedication
     Dosage: 0.25 MG (FREQUENCY = OTHER: Q3W)
     Route: 042
     Dates: start: 20210527
  21. ACTINAMIDE INJECTION [Concomitant]
     Indication: Premedication
     Dosage: 1 MG (FREQUENCY = OTHER: Q3CYCLE)
     Route: 030
     Dates: start: 20210527
  22. FOLCID [Concomitant]
     Indication: Premedication
     Dosage: 1 MG, QD
     Route: 048
     Dates: start: 20210527
  23. DEXAMETHASONE [Concomitant]
     Active Substance: DEXAMETHASONE
     Indication: Premedication
     Dosage: 4 MG, BID
     Route: 048
     Dates: start: 20210527
  24. METOCLOPRAMIDE HYDROCHLORIDE [Concomitant]
     Active Substance: METOCLOPRAMIDE HYDROCHLORIDE
     Indication: Prophylaxis of nausea and vomiting
     Dosage: 10 MG (FREQUENCY = AS NEEDED)
     Route: 048
     Dates: start: 20210527
  25. LOPERAMIDE [Concomitant]
     Active Substance: LOPERAMIDE
     Indication: Prophylaxis against diarrhoea
     Dosage: 2 MG (FREQUENCY = AS NEEDED)
     Route: 048
     Dates: start: 20210527
  26. TANTUM GARGLE [Concomitant]
     Indication: Mucosal inflammation
     Dosage: 100 ML (FREQUENCY = AS NEEDED)
     Route: 050
     Dates: start: 20210527
  27. CODEINE [Concomitant]
     Active Substance: CODEINE
     Indication: Prophylaxis
     Dosage: 20 MG, TID
     Route: 048
     Dates: start: 20210615
  28. ERDOSTEINE [Concomitant]
     Active Substance: ERDOSTEINE
     Indication: Productive cough
     Dosage: 300 MG, TID
     Route: 048
     Dates: start: 20210615
  29. TOPISOL MILK LOTION [Concomitant]
     Indication: Pruritus
     Dosage: 50 G (FREQUENCY = AS NEEDED)
     Route: 061
     Dates: start: 20210615
  30. LACTICARE ZEMAGIS LOTION [Concomitant]
     Indication: Pruritus
     Dosage: 20 G (FREQUENCY = AS NEEDED)
     Route: 061
     Dates: start: 20210615

REACTIONS (1)
  - Pneumocystis jirovecii pneumonia [Recovered/Resolved]

NARRATIVE: CASE EVENT DATE: 20210920
